FAERS Safety Report 8853191 (Version 1)
Quarter: 2012Q4

REPORT INFORMATION
  Report Type: 
  Country: US (occurrence: US)
  Receive Date: 20121022
  Receipt Date: 20121022
  Transmission Date: 20130627
  Serious: Yes (Other)
  Sender: FDA-Public Use
  Company Number: US-PFIZER INC-2012258214

PATIENT
  Age: 85 Year
  Sex: Female
  Weight: 55 kg

DRUGS (2)
  1. PREMARIN [Suspect]
     Indication: URETHRAL CARUNCLE
     Dosage: UNK, 1x/day
     Route: 067
  2. PREMARIN [Suspect]
     Dosage: UNK, 1x/day
     Route: 067
     Dates: start: 201210

REACTIONS (2)
  - Dementia [Unknown]
  - Amnesia [Unknown]
